FAERS Safety Report 10475936 (Version 1)
Quarter: 2014Q3

REPORT INFORMATION
  Report Type: Spontaneous
  Country: US (occurrence: US)
  Receive Date: 20140925
  Receipt Date: 20140925
  Transmission Date: 20150326
  Serious: No
  Sender: FDA-Public Use
  Company Number: US-GLAXOSMITHKLINE-A1048241A

PATIENT
  Age: 67 Year
  Sex: Female

DRUGS (24)
  1. SEREVENT [Suspect]
     Active Substance: SALMETEROL XINAFOATE
     Indication: ASTHMA
     Dosage: 1PUFF TWICE PER DAY
     Route: 055
     Dates: start: 2011
  2. METOPROLOL [Concomitant]
     Active Substance: METOPROLOL
  3. BENADRYL [Concomitant]
     Active Substance: DIPHENHYDRAMINE HYDROCHLORIDE
  4. SIMVASTATIN. [Concomitant]
     Active Substance: SIMVASTATIN
  5. MONTELUKAST [Concomitant]
     Active Substance: MONTELUKAST SODIUM
  6. FLUOXETINE [Concomitant]
     Active Substance: FLUOXETINE\FLUOXETINE HYDROCHLORIDE
  7. DEXILANT [Concomitant]
     Active Substance: DEXLANSOPRAZOLE
  8. OXYCONTIN [Concomitant]
     Active Substance: OXYCODONE HYDROCHLORIDE
  9. ASPIRIN. [Concomitant]
     Active Substance: ASPIRIN
  10. ALPRAZOLAM. [Concomitant]
     Active Substance: ALPRAZOLAM
  11. LISINOPRIL. [Concomitant]
     Active Substance: LISINOPRIL
  12. METFORMIN [Concomitant]
     Active Substance: METFORMIN HYDROCHLORIDE
  13. HYDROCORTISONE. [Concomitant]
     Active Substance: HYDROCORTISONE
  14. LOVAZA [Concomitant]
     Active Substance: OMEGA-3-ACID ETHYL ESTERS
  15. TRILIPIX [Suspect]
     Active Substance: FENOFIBRIC ACID
     Indication: PRODUCT USED FOR UNKNOWN INDICATION
     Route: 065
  16. MIRTAZAPINE. [Concomitant]
     Active Substance: MIRTAZAPINE
  17. EVISTA [Concomitant]
     Active Substance: RALOXIFENE HYDROCHLORIDE
  18. OXYCODONE [Concomitant]
     Active Substance: OXYCODONE
  19. ZETIA [Concomitant]
     Active Substance: EZETIMIBE
  20. PROAIR HFA [Concomitant]
     Active Substance: ALBUTEROL SULFATE
     Route: 055
  21. ZOFRAN [Concomitant]
     Active Substance: ONDANSETRON HYDROCHLORIDE
  22. TRAVATAN [Concomitant]
     Active Substance: TRAVOPROST
  23. PREMARIN [Concomitant]
     Active Substance: ESTROGENS, CONJUGATED
  24. CLOBETASOL [Concomitant]
     Active Substance: CLOBETASOL

REACTIONS (4)
  - Middle insomnia [Unknown]
  - Dyspnoea [Recovering/Resolving]
  - Product quality issue [Unknown]
  - Muscle spasms [Unknown]

NARRATIVE: CASE EVENT DATE: 20131021
